FAERS Safety Report 21908571 (Version 1)
Quarter: 2023Q1

REPORT INFORMATION
  Report Type: Spontaneous
  Country: US (occurrence: None)
  Receive Date: 20230124
  Receipt Date: 20230124
  Transmission Date: 20230418
  Serious: No
  Sender: FDA-Public Use
  Company Number: None

PATIENT
  Age: 50 Year
  Sex: Male
  Weight: 83.6 kg

DRUGS (6)
  1. PROMACTA [Suspect]
     Active Substance: ELTROMBOPAG OLAMINE
     Indication: Chronic myeloid leukaemia
     Dosage: 25MG DAILY ORAL
     Route: 048
  2. ALLOPURINOL [Concomitant]
     Active Substance: ALLOPURINOL
  3. FAMOTIDINE [Concomitant]
     Active Substance: FAMOTIDINE
  4. METHADONE [Concomitant]
     Active Substance: METHADONE HYDROCHLORIDE
  5. MULVITAMIN [Concomitant]
  6. ONDANSETRON STOOL SOFTNER [Concomitant]

REACTIONS (1)
  - Thrombocytopenia [None]
